FAERS Safety Report 18835305 (Version 1)
Quarter: 2021Q1

REPORT INFORMATION
  Report Type: Spontaneous
  Country: US (occurrence: US)
  Receive Date: 20210203
  Receipt Date: 20210203
  Transmission Date: 20210419
  Serious: No
  Sender: FDA-Public Use
  Company Number: US-ALLERGAN-2018472US

PATIENT
  Sex: Female

DRUGS (4)
  1. BOTOX COSMETIC [Suspect]
     Active Substance: ONABOTULINUMTOXINA
     Indication: SKIN WRINKLING
     Dosage: 12 UNITS, SINGLE
     Dates: start: 20200426, end: 20200426
  2. BOTOX COSMETIC [Suspect]
     Active Substance: ONABOTULINUMTOXINA
     Indication: SKIN WRINKLING
     Dosage: 16 UNITS, SINGLE
     Dates: start: 20200426, end: 20200426
  3. BOTOX COSMETIC [Suspect]
     Active Substance: ONABOTULINUMTOXINA
     Indication: SKIN WRINKLING
     Dosage: 10 UNITS, SINGLE
     Dates: start: 20200426, end: 20200426
  4. JUVEDERM ULTRA XC [Suspect]
     Active Substance: HYALURONIC ACID\LIDOCAINE HYDROCHLORIDE
     Indication: LIP COSMETIC PROCEDURE
     Dosage: 1 ML
     Dates: start: 20200426, end: 20200426

REACTIONS (14)
  - Hypoaesthesia oral [Not Recovered/Not Resolved]
  - Asthenia [Not Recovered/Not Resolved]
  - Swelling face [Not Recovered/Not Resolved]
  - Heart rate increased [Unknown]
  - Dehydration [Unknown]
  - Urinary tract infection [Unknown]
  - Tachycardia [Unknown]
  - Paraesthesia oral [Not Recovered/Not Resolved]
  - Feeling abnormal [Unknown]
  - Blood potassium decreased [Unknown]
  - Anxiety [Unknown]
  - Weight decreased [Unknown]
  - Eyelid ptosis [Not Recovered/Not Resolved]
  - Swollen tongue [Not Recovered/Not Resolved]

NARRATIVE: CASE EVENT DATE: 20200428
